FAERS Safety Report 14846595 (Version 1)
Quarter: 2018Q2

REPORT INFORMATION
  Report Type: Spontaneous
  Country: FR (occurrence: FR)
  Receive Date: 20180504
  Receipt Date: 20180504
  Transmission Date: 20180711
  Serious: Yes (Other)
  Sender: FDA-Public Use
  Company Number: FR-MERCK KGAA-2047202

PATIENT
  Age: 44 Year
  Sex: Female

DRUGS (1)
  1. NOVOTHYROX [Suspect]
     Active Substance: LEVOTHYROXINE SODIUM
     Indication: PRODUCT USED FOR UNKNOWN INDICATION
     Dates: start: 201706

REACTIONS (18)
  - Loss of personal independence in daily activities [None]
  - Headache [Recovered/Resolved]
  - Depression [None]
  - Insomnia [None]
  - Suicidal ideation [None]
  - Migraine [None]
  - Madarosis [None]
  - Fatigue [None]
  - Aggression [None]
  - Arthralgia [None]
  - Mood swings [None]
  - Alopecia [Recovered/Resolved]
  - Gait disturbance [None]
  - Depressed mood [None]
  - Social avoidant behaviour [None]
  - Muscle spasms [Recovered/Resolved]
  - Chest discomfort [None]
  - Anger [None]

NARRATIVE: CASE EVENT DATE: 2017
